FAERS Safety Report 5418035-9 (Version None)
Quarter: 2007Q3

REPORT INFORMATION
  Report Type: 
  Country: None (occurrence: None)
  Receive Date: 20070817
  Receipt Date: 20070806
  Transmission Date: 20080115
  Serious: Yes (Hospitalization)
  Sender: FDA-Public Use
  Company Number: JP-SANOFI-SYNTHELABO-A01200708027

PATIENT
  Age: 54 Year
  Sex: Female

DRUGS (7)
  1. PEGASYS [Concomitant]
     Indication: HEPATITIS C
     Route: 058
     Dates: start: 20070606
  2. COPEGUS [Concomitant]
     Indication: HEPATITIS C
     Dosage: 200 MG
     Route: 048
     Dates: start: 20070606
  3. GASMOTIN [Concomitant]
     Indication: GASTRITIS
     Dosage: 15 MG
     Route: 048
  4. URSO 250 [Concomitant]
     Indication: HEPATITIS C
     Dosage: 600 MG
     Route: 048
  5. MICARDIS [Concomitant]
     Indication: HYPERTENSION
     Dosage: 40 MG
     Route: 048
  6. NORVASC [Concomitant]
     Indication: HYPERTENSION
     Dosage: 5 MG
     Route: 048
  7. ZOLPIDEM [Suspect]
     Indication: INSOMNIA
     Route: 048
     Dates: start: 20070702, end: 20070703

REACTIONS (3)
  - ABNORMAL BEHAVIOUR [None]
  - INCONTINENCE [None]
  - LOSS OF CONSCIOUSNESS [None]
